FAERS Safety Report 12309279 (Version 1)
Quarter: 2016Q2

REPORT INFORMATION
  Report Type: Spontaneous
  Country: US (occurrence: US)
  Receive Date: 20160427
  Receipt Date: 20160427
  Transmission Date: 20160815
  Serious: No
  Sender: FDA-Public Use
  Company Number: US-GLENMARK PHARMACEUTICALS INC, USA.-2016GMK022224

PATIENT

DRUGS (1)
  1. IMIQUIMOD. [Suspect]
     Active Substance: IMIQUIMOD
     Indication: NEOPLASM SKIN
     Dosage: UNK, 5 TIMES A WEEK

REACTIONS (6)
  - Application site inflammation [Recovering/Resolving]
  - Off label use [Unknown]
  - Application site swelling [Recovering/Resolving]
  - Application site erythema [Recovering/Resolving]
  - Impaired healing [Unknown]
  - Dry skin [Unknown]
